FAERS Safety Report 23652661 (Version 7)
Quarter: 2024Q2

REPORT INFORMATION
  Report Type: Spontaneous
  Country: FR (occurrence: FR)
  Receive Date: 20240320
  Receipt Date: 20240516
  Transmission Date: 20240716
  Serious: No
  Sender: FDA-Public Use
  Company Number: FR-PFIZER INC-PV202400027254

PATIENT
  Age: 69 Year
  Sex: Female

DRUGS (4)
  1. SOMATROPIN [Suspect]
     Active Substance: SOMATROPIN
     Indication: Growth hormone deficiency
     Dosage: 1 DF, 1X/DAY
  2. HYDROCORTISONE [Concomitant]
     Active Substance: HYDROCORTISONE
     Indication: Adrenal insufficiency
     Dosage: 10 MG IN THE EVENING
  3. LEVOTHYROXINE [Concomitant]
     Active Substance: LEVOTHYROXINE\LEVOTHYROXINE SODIUM
     Indication: Hypothyroidism
     Dosage: 1 DF, 1X/DAY
  4. CARBIDOPA\LEVODOPA [Concomitant]
     Active Substance: CARBIDOPA\LEVODOPA
     Dosage: 1 DF, 4X/DAY

REACTIONS (6)
  - Drug dose omission by device [Unknown]
  - Device issue [Unknown]
  - Device occlusion [Unknown]
  - Device leakage [Unknown]
  - Expired device used [Unknown]
  - Device breakage [Unknown]

NARRATIVE: CASE EVENT DATE: 20240224
